FAERS Safety Report 12204507 (Version 1)
Quarter: 2016Q1

REPORT INFORMATION
  Report Type: Spontaneous
  Country: GB (occurrence: GB)
  Receive Date: 20160323
  Receipt Date: 20160323
  Transmission Date: 20160526
  Serious: Yes (Death)
  Sender: FDA-Public Use
  Company Number: GB-B. BRAUN MEDICAL INC.-1049494

PATIENT
  Age: 70 Year
  Sex: Male

DRUGS (1)
  1. SODIUM CHLORIDE. [Suspect]
     Active Substance: SODIUM CHLORIDE
     Indication: HYPOTENSION
     Dates: start: 20150203, end: 20150203

REACTIONS (1)
  - Death [None]
